FAERS Safety Report 6030017-5 (Version None)
Quarter: 2009Q1

REPORT INFORMATION
  Report Type: 
  Country: None (occurrence: None)
  Receive Date: 20090105
  Receipt Date: 20090105
  Transmission Date: 20090719
  Serious: Yes (Disabling, Other)
  Sender: FDA-Public Use
  Company Number: None

PATIENT
  Age: 60 Year
  Sex: Female
  Weight: 65.7716 kg

DRUGS (1)
  1. RESTASIS [Suspect]
     Indication: DRY EYE
     Dosage: 1 DROP IN BOTH EYES TWICE DAILY OPHTHALMIC
     Route: 047
     Dates: start: 20061201, end: 20081218

REACTIONS (1)
  - EPISTAXIS [None]
